FAERS Safety Report 7483531-X (Version None)
Quarter: 2011Q2

REPORT INFORMATION
  Report Type: 
  Country: None (occurrence: None)
  Receive Date: 20110517
  Receipt Date: 20110504
  Transmission Date: 20111010
  Serious: Yes (Hospitalization)
  Sender: FDA-Public Use
  Company Number: FR-TYCO HEALTHCARE/MALLINCKRODT-T201100903

PATIENT

DRUGS (1)
  1. MORPHINE [Suspect]
     Indication: DRUG WITHDRAWAL SYNDROME
     Dosage: 0.5 MG/KG/DAY

REACTIONS (1)
  - CLONIC CONVULSION [None]
